FAERS Safety Report 17773424 (Version 1)
Quarter: 2020Q2

REPORT INFORMATION
  Report Type: Spontaneous
  Country: DE (occurrence: DE)
  Receive Date: 20200512
  Receipt Date: 20200512
  Transmission Date: 20200714
  Serious: Yes (Hospitalization)
  Sender: FDA-Public Use
  Company Number: NVSC2020DE128533

PATIENT
  Age: 15 Year
  Sex: Female
  Weight: 62 kg

DRUGS (1)
  1. PARACETAMOL [Suspect]
     Active Substance: ACETAMINOPHEN
     Indication: MIGRAINE
     Dosage: 7500 MG, TOTAL (DAILY DOSE: 7500 MG MILLGRAM(S) EVERY TOTAL 15 SEPARATED DOSES)
     Route: 048

REACTIONS (2)
  - Overdose [Recovered/Resolved]
  - Feeling jittery [Recovered/Resolved]

NARRATIVE: CASE EVENT DATE: 20191102
